FAERS Safety Report 14313571 (Version 1)
Quarter: 2017Q4

REPORT INFORMATION
  Report Type: Report from Study
  Country: GB (occurrence: GB)
  Receive Date: 20171221
  Receipt Date: 20171221
  Transmission Date: 20180321
  Serious: Yes (Hospitalization)
  Sender: FDA-Public Use
  Company Number: GB-AMGEN-GBRSL2017188237

PATIENT
  Sex: Male

DRUGS (1)
  1. ARANESP [Suspect]
     Active Substance: DARBEPOETIN ALFA
     Indication: PRODUCT USED FOR UNKNOWN INDICATION
     Dosage: 40 MUG, UNK
     Route: 065

REACTIONS (6)
  - Blood disorder [Unknown]
  - Urinary tract infection [Not Recovered/Not Resolved]
  - Renal disorder [Unknown]
  - Blood pressure abnormal [Unknown]
  - Weight decreased [Unknown]
  - Nasopharyngitis [Unknown]
